FAERS Safety Report 24965218 (Version 1)
Quarter: 2025Q1

REPORT INFORMATION
  Report Type: Spontaneous
  Country: US (occurrence: None)
  Receive Date: 20250212
  Receipt Date: 20250212
  Transmission Date: 20250408
  Serious: No
  Sender: FDA-CTU
  Company Number: None

PATIENT
  Age: 25 Year
  Sex: Female
  Weight: 57.15 kg

DRUGS (10)
  1. FERUMOXYTOL [Suspect]
     Active Substance: FERUMOXYTOL
     Indication: Iron deficiency anaemia
     Route: 042
     Dates: start: 20250210, end: 20250210
  2. SODIUM CHLORIDE [Suspect]
     Active Substance: SODIUM CHLORIDE
     Indication: Iron deficiency anaemia
     Route: 042
  3. FERROUS SULFATE [Suspect]
     Active Substance: FERROUS SULFATE
  4. Vitamin D3 1000 units [Concomitant]
  5. METOCLOPRAMIDE [Concomitant]
     Active Substance: METOCLOPRAMIDE
  6. Pantoprazole 40 mg DR [Concomitant]
  7. VITAMINS [Concomitant]
     Active Substance: VITAMINS
  8. URSODIOL [Concomitant]
     Active Substance: URSODIOL
  9. FAMOTIDINE [Concomitant]
     Active Substance: FAMOTIDINE
  10. MAALOX ANTACID [Concomitant]
     Active Substance: ALUMINUM HYDROXIDE\DIMETHICONE\MAGNESIUM HYDROXIDE

REACTIONS (6)
  - Infusion related reaction [None]
  - Dyspnoea [None]
  - Chest discomfort [None]
  - Back pain [None]
  - Flushing [None]
  - Ear discomfort [None]

NARRATIVE: CASE EVENT DATE: 20250210
